FAERS Safety Report 4326342-6 (Version None)
Quarter: 2004Q1

REPORT INFORMATION
  Report Type: 
  Country: None (occurrence: None)
  Receive Date: 20040329
  Receipt Date: 20040329
  Transmission Date: 20041129
  Serious: Yes (Life-Threatening)
  Sender: FDA-Public Use
  Company Number: None

PATIENT
  Age: 41 Year
  Sex: Female
  Weight: 90.7194 kg

DRUGS (1)
  1. WELLBUTRIN [Suspect]
     Dosage: ORAL
     Route: 048
     Dates: start: 20020520, end: 20020629

REACTIONS (1)
  - CONVULSION [None]
